FAERS Safety Report 15763802 (Version 1)
Quarter: 2018Q4

REPORT INFORMATION
  Report Type: Spontaneous
  Country: NL (occurrence: NL)
  Receive Date: 20181227
  Receipt Date: 20181227
  Transmission Date: 20190205
  Serious: Yes (Other)
  Sender: FDA-Public Use
  Company Number: NL-TEVA-2018-NL-991442

PATIENT
  Sex: Male

DRUGS (2)
  1. FOLIUMZUUR [Concomitant]
     Active Substance: FOLIC ACID
     Route: 065
  2. PYRIDOXINE [Suspect]
     Active Substance: PYRIDOXINE
     Dosage: 50 MILLIGRAM DAILY;
     Route: 065
     Dates: start: 2004, end: 2017

REACTIONS (1)
  - Neuropathy peripheral [Not Recovered/Not Resolved]
